FAERS Safety Report 23753603 (Version 1)
Quarter: 2024Q2

REPORT INFORMATION
  Report Type: Spontaneous
  Country: US (occurrence: US)
  Receive Date: 20240417
  Receipt Date: 20240417
  Transmission Date: 20240716
  Serious: Yes (Other)
  Sender: FDA-Public Use
  Company Number: US-B.Braun Medical Inc.-2155662

PATIENT
  Age: 55 Year
  Sex: Male

DRUGS (3)
  1. CEFOXITIN AND DEXTROSE [Suspect]
     Active Substance: CEFOXITIN SODIUM
     Indication: Peritonitis
  2. AZITHROMYCIN [Concomitant]
     Active Substance: AZITHROMYCIN
  3. AMIKACIN [Concomitant]
     Active Substance: AMIKACIN

REACTIONS (2)
  - Renal failure [Unknown]
  - Off label use [Unknown]
